FAERS Safety Report 4980125-2 (Version None)
Quarter: 2006Q2

REPORT INFORMATION
  Report Type: 
  Country: None (occurrence: None)
  Receive Date: 20060421
  Receipt Date: 20050913
  Transmission Date: 20061013
  Serious: Yes (Hospitalization, Other)
  Sender: FDA-Public Use
  Company Number: US-MERCK-0509USA01835

PATIENT
  Age: 49 Year
  Sex: Male
  Weight: 77 kg

DRUGS (12)
  1. VIOXX [Suspect]
     Indication: MONARTHRITIS
     Route: 048
     Dates: start: 20010101, end: 20030101
  2. TYLENOL (CAPLET) [Concomitant]
     Route: 065
  3. XANAX [Concomitant]
     Route: 065
     Dates: start: 20020101
  4. SEROQUEL [Concomitant]
     Route: 065
     Dates: start: 20020101
  5. TRAZODONE HYDROCHLORIDE [Concomitant]
     Route: 065
     Dates: start: 20020101
  6. REMERON [Concomitant]
     Route: 065
     Dates: start: 20020101
  7. ASPIRIN [Concomitant]
     Route: 065
  8. VITAMIN B COMPLEX [Concomitant]
     Route: 065
  9. PLAVIX [Concomitant]
     Route: 065
  10. ATENOLOL [Concomitant]
     Route: 065
  11. HYDROCHLOROTHIAZIDE [Concomitant]
     Route: 065
  12. TRAMADOL HYDROCHLORIDE [Concomitant]
     Route: 065

REACTIONS (20)
  - ALCOHOLISM [None]
  - ANGINA UNSTABLE [None]
  - ARTHRALGIA [None]
  - BACK PAIN [None]
  - CHEST PAIN [None]
  - CONVULSION [None]
  - DEPRESSION [None]
  - FALL [None]
  - GASTRIC ULCER [None]
  - HAEMORRHAGIC STROKE [None]
  - HEMIPARESIS [None]
  - HYPOAESTHESIA [None]
  - INFARCTION [None]
  - INSOMNIA [None]
  - MALLORY-WEISS SYNDROME [None]
  - MYOCARDIAL INFARCTION [None]
  - PAIN IN EXTREMITY [None]
  - PRESCRIBED OVERDOSE [None]
  - SHOULDER PAIN [None]
  - TRANSIENT ISCHAEMIC ATTACK [None]
